FAERS Safety Report 12905667 (Version 2)
Quarter: 2016Q4

REPORT INFORMATION
  Report Type: Spontaneous
  Country: GB (occurrence: GB)
  Receive Date: 20161103
  Receipt Date: 20161103
  Transmission Date: 20170207
  Serious: Yes (Hospitalization)
  Sender: FDA-Public Use
  Company Number: GB-CIPLA LTD.-2016GB20484

PATIENT

DRUGS (3)
  1. CITALOPRAM [Suspect]
     Active Substance: CITALOPRAM HYDROBROMIDE
     Indication: DEPRESSION
     Dosage: 10 MG, UNK
     Route: 048
     Dates: start: 20131014
  2. RASPBERRY KETONE [Concomitant]
     Active Substance: RASPBERRY KETONE
     Dosage: UNK
     Route: 065
  3. COD LIVER OIL [Concomitant]
     Active Substance: COD LIVER OIL
     Dosage: UNK
     Route: 065

REACTIONS (1)
  - Femur fracture [Recovering/Resolving]

NARRATIVE: CASE EVENT DATE: 20161003
